FAERS Safety Report 7272127-0 (Version None)
Quarter: 2011Q1

REPORT INFORMATION
  Report Type: 
  Country: None (occurrence: None)
  Receive Date: 20110203
  Receipt Date: 20110121
  Transmission Date: 20110831
  Serious: Yes (Hospitalization)
  Sender: FDA-Public Use
  Company Number: KR-ELI_LILLY_AND_COMPANY-KR201101005464

PATIENT
  Sex: Male
  Weight: 74.4 kg

DRUGS (6)
  1. DEXAMETHASONE [Concomitant]
     Dosage: 2 MG, DAILY (1/D)
     Route: 042
     Dates: start: 20080307, end: 20080307
  2. GABAPENTIN [Concomitant]
     Indication: NEUROPATHY PERIPHERAL
     Dates: start: 20070806, end: 20080317
  3. DEXAMETHASONE [Concomitant]
     Indication: PREMEDICATION
     Dosage: 8 MG, 2/D
     Route: 042
     Dates: start: 20080306, end: 20080308
  4. VITAMIN B-12 [Concomitant]
     Indication: PREMEDICATION
     Dosage: 1000 MG, DAILY (1/D)
     Route: 030
     Dates: start: 20080118, end: 20080118
  5. PEMETREXED [Suspect]
     Indication: NON-SMALL CELL LUNG CANCER
     Dosage: 500 MG/M2, UNK
     Route: 042
     Dates: start: 20080125
  6. FOLIC ACID [Concomitant]
     Indication: PREMEDICATION
     Dosage: 1 D/F, DAILY (1/D)
     Route: 048
     Dates: start: 20080224, end: 20080328

REACTIONS (2)
  - PULMONARY FIBROSIS [None]
  - PNEUMONIA [None]
